FAERS Safety Report 24394266 (Version 1)
Quarter: 2024Q4

REPORT INFORMATION
  Report Type: Report from Study
  Country: US (occurrence: US)
  Receive Date: 20241004
  Receipt Date: 20241004
  Transmission Date: 20250115
  Serious: Yes (Hospitalization, Other)
  Sender: ABBVIE
  Company Number: US-ABBVIE-5946231

PATIENT
  Age: 73 Year
  Sex: Female

DRUGS (1)
  1. HUMIRA [Suspect]
     Active Substance: ADALIMUMAB
     Indication: Rheumatoid arthritis
     Route: 058
     Dates: start: 20210329, end: 20240617

REACTIONS (8)
  - Illness [Unknown]
  - Lung neoplasm malignant [Unknown]
  - Foreign body aspiration [Unknown]
  - Pain [Unknown]
  - Memory impairment [Unknown]
  - Dyspnoea [Unknown]
  - Infection [Unknown]
  - Pulmonary oedema [Unknown]

NARRATIVE: CASE EVENT DATE: 20240625
